FAERS Safety Report 10820071 (Version 1)
Quarter: 2015Q1

REPORT INFORMATION
  Report Type: Report from Study
  Country: US (occurrence: US)
  Receive Date: 20150218
  Receipt Date: 20150218
  Transmission Date: 20150721
  Serious: No
  Sender: FDA-Public Use
  Company Number: US-ABBVIE-14K-163-1293375-00

PATIENT
  Age: 61 Year
  Sex: Female

DRUGS (5)
  1. HUMIRA [Suspect]
     Active Substance: ADALIMUMAB
     Indication: COLITIS ULCERATIVE
     Route: 065
     Dates: start: 20140207
  2. OMEPRAZOLE. [Concomitant]
     Active Substance: OMEPRAZOLE
     Indication: PRODUCT USED FOR UNKNOWN INDICATION
  3. LIALDA [Concomitant]
     Active Substance: MESALAMINE
     Indication: PRODUCT USED FOR UNKNOWN INDICATION
  4. TRAMADOL [Concomitant]
     Active Substance: TRAMADOL
     Indication: PRODUCT USED FOR UNKNOWN INDICATION
  5. TYLENOL [Concomitant]
     Active Substance: ACETAMINOPHEN
     Indication: INSOMNIA

REACTIONS (10)
  - Faeces discoloured [Not Recovered/Not Resolved]
  - Drug ineffective [Unknown]
  - Vomiting [Unknown]
  - Pyrexia [Unknown]
  - Diarrhoea [Not Recovered/Not Resolved]
  - Asthenia [Unknown]
  - Fatigue [Unknown]
  - Nausea [Unknown]
  - Influenza like illness [Recovering/Resolving]
  - Abdominal discomfort [Unknown]

NARRATIVE: CASE EVENT DATE: 2014
